FAERS Safety Report 9011321 (Version 3)
Quarter: 2013Q1

REPORT INFORMATION
  Report Type: Spontaneous
  Country: IT (occurrence: IT)
  Receive Date: 20130108
  Receipt Date: 20130204
  Transmission Date: 20140127
  Serious: Yes (Life-Threatening, Hospitalization)
  Sender: FDA-Public Use
  Company Number: IT-JNJFOC-20130101679

PATIENT
  Age: 21 Year
  Sex: Male

DRUGS (3)
  1. INVEGA [Suspect]
     Indication: PRODUCT USED FOR UNKNOWN INDICATION
     Route: 048
  2. INVEGA [Suspect]
     Indication: PRODUCT USED FOR UNKNOWN INDICATION
     Route: 048
     Dates: start: 20121115, end: 20121115
  3. ALCOHOL [Suspect]
     Indication: SUICIDE ATTEMPT
     Dosage: ALCOHOL 95%, 1 LITER
     Route: 048

REACTIONS (6)
  - Coma [Recovered/Resolved]
  - Self injurious behaviour [Recovered/Resolved]
  - Convulsion [Recovered/Resolved]
  - Vomiting [Recovered/Resolved]
  - Respiratory failure [Recovered/Resolved]
  - Hypothermia [Recovered/Resolved]
